FAERS Safety Report 15210081 (Version 1)
Quarter: 2018Q3

REPORT INFORMATION
  Report Type: Spontaneous
  Country: CM (occurrence: CM)
  Receive Date: 20180727
  Receipt Date: 20180727
  Transmission Date: 20181010
  Serious: Yes (Life-Threatening, Other)
  Sender: FDA-Public Use
  Company Number: PHHY2018CM056663

PATIENT
  Age: 35 Year
  Sex: Female

DRUGS (2)
  1. SPASFON (PHLOROGLUCINOL) [Concomitant]
     Active Substance: PHLOROGLUCINOL
     Indication: PRODUCT USED FOR UNKNOWN INDICATION
     Dosage: 1 DF, Q8H
     Route: 065
  2. CURAM [Suspect]
     Active Substance: AMOXICILLIN\CLAVULANATE POTASSIUM
     Indication: VAGINAL DISCHARGE
     Dosage: 1 G, Q8H
     Route: 048
     Dates: start: 201802, end: 201802

REACTIONS (3)
  - Abortion threatened [Recovered/Resolved]
  - Pelvic pain [Recovered/Resolved]
  - Maternal exposure during pregnancy [Unknown]
